FAERS Safety Report 16339666 (Version 9)
Quarter: 2019Q3

REPORT INFORMATION
  Report Type: Spontaneous
  Country: US (occurrence: US)
  Receive Date: 20190521
  Receipt Date: 20190711
  Transmission Date: 20191004
  Serious: Yes (Other)
  Sender: FDA-Public Use
  Company Number: US-SA-2019SA137297

PATIENT
  Age: 60 Year
  Sex: Female

DRUGS (7)
  1. RITUXAN [Suspect]
     Active Substance: RITUXIMAB
     Dosage: UNK
     Route: 042
  2. PREDNISONE. [Suspect]
     Active Substance: PREDNISONE
  3. PREDNISONE. [Suspect]
     Active Substance: PREDNISONE
     Dosage: 40 MG
     Route: 048
  4. CABLIVI [Suspect]
     Active Substance: CAPLACIZUMAB-YHDP
     Indication: THROMBOTIC THROMBOCYTOPENIC PURPURA
     Dosage: 11 MG, QD
     Route: 058
     Dates: start: 20190501
  5. CABLIVI [Suspect]
     Active Substance: CAPLACIZUMAB-YHDP
     Dosage: 11 MG
     Route: 058
     Dates: start: 20190621
  6. AMLODIPINE [Concomitant]
     Active Substance: AMLODIPINE BESYLATE
  7. CABLIVI [Suspect]
     Active Substance: CAPLACIZUMAB-YHDP
     Indication: THROMBOTIC MICROANGIOPATHY
     Dosage: 11 MG, QD
     Route: 042
     Dates: start: 20190430

REACTIONS (23)
  - Platelet count increased [Unknown]
  - Muscle spasms [Unknown]
  - Decreased activity [Recovering/Resolving]
  - Injection site pain [Unknown]
  - Contusion [Unknown]
  - Insomnia [Unknown]
  - Pain [Unknown]
  - Cerebrovascular accident [Recovering/Resolving]
  - Infection [Unknown]
  - Erythema [Unknown]
  - Fatigue [Not Recovered/Not Resolved]
  - Ageusia [Unknown]
  - Muscular weakness [Unknown]
  - Asthenia [Unknown]
  - Malaise [Unknown]
  - Injection site pruritus [Not Recovered/Not Resolved]
  - Bedridden [Unknown]
  - Cushingoid [Unknown]
  - Blood pressure systolic increased [Recovering/Resolving]
  - Catheter site haemorrhage [Not Recovered/Not Resolved]
  - Epistaxis [Not Recovered/Not Resolved]
  - Dyspnoea [Recovered/Resolved]
  - Antibody test abnormal [Unknown]

NARRATIVE: CASE EVENT DATE: 20190621
